FAERS Safety Report 24612705 (Version 1)
Quarter: 2024Q4

REPORT INFORMATION
  Report Type: Spontaneous
  Country: GB (occurrence: GB)
  Receive Date: 20241113
  Receipt Date: 20241113
  Transmission Date: 20250115
  Serious: Yes (Other)
  Sender: TORRENT PHARMA INC.
  Company Number: None

PATIENT
  Age: 39 Year
  Sex: Female
  Weight: 52 kg

DRUGS (1)
  1. ESCITALOPRAM [Suspect]
     Active Substance: ESCITALOPRAM OXALATE
     Indication: Product used for unknown indication
     Dosage: 5MG ONCE A DAY
     Route: 065

REACTIONS (2)
  - Extrasystoles [Recovered/Resolved]
  - Condition aggravated [Recovered/Resolved]
